FAERS Safety Report 25424265 (Version 1)
Quarter: 2025Q2

REPORT INFORMATION
  Report Type: Report from Study
  Country: US (occurrence: US)
  Receive Date: 20250611
  Receipt Date: 20250611
  Transmission Date: 20250717
  Serious: Yes (Death)
  Sender: OTSUKA
  Company Number: US-MMM-Otsuka-7EGVWXFI

PATIENT
  Sex: Male

DRUGS (1)
  1. BREXPIPRAZOLE [Suspect]
     Active Substance: BREXPIPRAZOLE
     Indication: Major depression
     Dosage: 0.5 MG, QD (AT BEDTIME)
     Route: 048
     Dates: start: 20250128

REACTIONS (1)
  - Dementia Alzheimer^s type [Fatal]
